FAERS Safety Report 12363657 (Version 1)
Quarter: 2016Q2

REPORT INFORMATION
  Report Type: Spontaneous
  Country: US (occurrence: US)
  Receive Date: 20160512
  Receipt Date: 20160512
  Transmission Date: 20160815
  Serious: Yes (Life-Threatening, Other)
  Sender: FDA-Public Use
  Company Number: US-MDT-ADR-2016-00020

PATIENT
  Age: 48 Year
  Sex: Female

DRUGS (5)
  1. BACLOFEN. [Suspect]
     Active Substance: BACLOFEN
     Dosage: 419.82 MCG/DAY
     Route: 037
  2. FENTANYL. [Suspect]
     Active Substance: FENTANYL
     Dosage: 1382.7 MCG/DAY
     Route: 037
  3. DILAUDID [Suspect]
     Active Substance: HYDROMORPHONE HYDROCHLORIDE
  4. BENZODIAZEPINE [Suspect]
     Active Substance: BENZODIAZEPINE
  5. MARCAINE [Suspect]
     Active Substance: BUPIVACAINE HYDROCHLORIDE
     Dosage: 11.313 MG/DAY
     Route: 037

REACTIONS (8)
  - Fatigue [Recovered/Resolved]
  - Mental status changes [Recovered/Resolved]
  - Overdose [Recovered/Resolved]
  - Respiratory arrest [Recovered/Resolved]
  - Pain [Recovered/Resolved]
  - Incorrect route of drug administration [Recovered/Resolved]
  - Loss of consciousness [Recovered/Resolved]
  - Somnolence [Recovered/Resolved]
